FAERS Safety Report 14589615 (Version 2)
Quarter: 2018Q1

REPORT INFORMATION
  Report Type: Report from Study
  Country: US (occurrence: US)
  Receive Date: 20180302
  Receipt Date: 20180313
  Transmission Date: 20180509
  Serious: No
  Sender: FDA-Public Use
  Company Number: US-AMGEN-USASL2018027270

PATIENT
  Age: 70 Year
  Sex: Female
  Weight: 114.2 kg

DRUGS (3)
  1. ENBREL [Suspect]
     Active Substance: ETANERCEPT
     Dosage: 50 MG, QWK
     Route: 058
     Dates: start: 201705
  2. ENBREL [Suspect]
     Active Substance: ETANERCEPT
     Indication: RHEUMATOID ARTHRITIS
     Dosage: 50 MG, QWK
     Route: 058
     Dates: start: 20160928
  3. VITAMIN B12 [Concomitant]
     Active Substance: CYANOCOBALAMIN
     Indication: ANAEMIA
     Dosage: UNK UNK, QWK

REACTIONS (6)
  - Asthenia [Unknown]
  - Intentional dose omission [Unknown]
  - Erythema [Unknown]
  - Fall [Unknown]
  - Emotional distress [Unknown]
  - Contusion [Unknown]

NARRATIVE: CASE EVENT DATE: 2016
